FAERS Safety Report 19692826 (Version 2)
Quarter: 2021Q3

REPORT INFORMATION
  Report Type: Spontaneous
  Country: PK (occurrence: PK)
  Receive Date: 20210812
  Receipt Date: 20210825
  Transmission Date: 20211014
  Serious: Yes (Death)
  Sender: FDA-Public Use
  Company Number: PK-NOVOPROD-837774

PATIENT
  Age: 732 Month
  Sex: Female

DRUGS (1)
  1. MIXTARD 30 [Suspect]
     Active Substance: INSULIN HUMAN
     Indication: TYPE 2 DIABETES MELLITUS
     Dosage: 15?30 UNITS PER DAY
     Route: 058
     Dates: start: 20170808, end: 20210101

REACTIONS (3)
  - Hyperglycaemia [Fatal]
  - Hypertension [Fatal]
  - Renal failure [Fatal]
